FAERS Safety Report 12194108 (Version 1)
Quarter: 2016Q1

REPORT INFORMATION
  Report Type: Spontaneous
  Country: US (occurrence: None)
  Receive Date: 20160318
  Receipt Date: 20160318
  Transmission Date: 20160526
  Serious: Yes (Life-Threatening)
  Sender: FDA-Public Use
  Company Number: None

PATIENT
  Age: 1 Day
  Sex: Male
  Weight: .8 kg

DRUGS (1)
  1. INFASURF [Suspect]
     Active Substance: CALFACTANT
     Indication: RESPIRATORY DISTRESS
     Dosage: 3ML TWICE DAILY INTUBATED

REACTIONS (2)
  - Vomiting [None]
  - Cardio-respiratory arrest [None]

NARRATIVE: CASE EVENT DATE: 20151201
